FAERS Safety Report 6305368-7 (Version None)
Quarter: 2009Q3

REPORT INFORMATION
  Report Type: 
  Country: None (occurrence: None)
  Receive Date: 20090810
  Receipt Date: 20090810
  Transmission Date: 20100115
  Serious: Yes (Other)
  Sender: FDA-Public Use
  Company Number: None

PATIENT
  Sex: Female
  Weight: 46.2669 kg

DRUGS (1)
  1. TOPIRAMATE [Suspect]
     Indication: TRIGEMINAL NEURALGIA
     Dosage: 25MG ONCE DAILY PO
     Route: 048
     Dates: start: 20090623, end: 20090626

REACTIONS (7)
  - DROOLING [None]
  - EAR PAIN [None]
  - EYE PAIN [None]
  - FEELING ABNORMAL [None]
  - HEADACHE [None]
  - PAIN [None]
  - PRODUCT SUBSTITUTION ISSUE [None]
